FAERS Safety Report 7364865-6 (Version None)
Quarter: 2011Q1

REPORT INFORMATION
  Report Type: 
  Country: None (occurrence: None)
  Receive Date: 20110321
  Receipt Date: 20110310
  Transmission Date: 20110831
  Serious: Yes (Hospitalization)
  Sender: FDA-Public Use
  Company Number: US-BAXTER-2011BH005596

PATIENT
  Age: 45 Year
  Sex: Female

DRUGS (1)
  1. DURAMORPH PF [Suspect]
     Indication: BACK PAIN
     Route: 065
     Dates: start: 20110223, end: 20110223

REACTIONS (2)
  - HYPOTENSION [None]
  - OVERDOSE [None]
